FAERS Safety Report 9067761 (Version 1)
Quarter: 2013Q1

REPORT INFORMATION
  Report Type: Spontaneous
  Country: US (occurrence: US)
  Receive Date: 20130128
  Receipt Date: 20130128
  Transmission Date: 20140127
  Serious: Yes (Other)
  Sender: FDA-Public Use
  Company Number: US-ASTRAZENECA-2013SE04167

PATIENT
  Age: 83 Year
  Sex: Female
  Weight: 55.9 kg

DRUGS (33)
  1. NEXIUM [Suspect]
     Indication: HIATUS HERNIA
     Route: 048
     Dates: start: 2012
  2. NEXIUM [Suspect]
     Indication: HIATUS HERNIA
     Route: 048
     Dates: start: 2012
  3. PRILOSEC [Suspect]
     Route: 048
  4. AMBIEN [Suspect]
     Route: 065
  5. MORPHINE [Suspect]
     Route: 065
  6. KLOR-CON M10 [Suspect]
     Route: 065
  7. LORCET [Suspect]
     Indication: PAIN
     Dosage: 1 PILL (10/650) DAILY
     Route: 065
     Dates: start: 200101, end: 2007
  8. LORCET [Suspect]
     Indication: PAIN
     Dosage: 2 PILL DAILY EVERY FOUR HOURS AS NEEDED
     Route: 065
     Dates: start: 200101, end: 20120730
  9. SYNTHYROID [Concomitant]
     Indication: HYPOTHYROIDISM
     Route: 048
  10. LASIX [Concomitant]
     Indication: OEDEMA
     Route: 048
  11. LASIX [Concomitant]
     Indication: HYPERTENSION
     Route: 048
  12. PREDNISONE [Concomitant]
     Indication: POLYMYALGIA RHEUMATICA
     Route: 048
  13. CLARITIN-D [Concomitant]
     Indication: BRONCHITIS
  14. LEVAQUIN [Concomitant]
     Indication: BRONCHITIS
  15. LEVAQUIN [Concomitant]
     Indication: CYSTITIS INTERSTITIAL
  16. LEVAQUIN [Concomitant]
     Indication: OTITIS MEDIA
  17. PRO-AIR [Concomitant]
     Indication: BRONCHITIS
  18. ENABLEX [Concomitant]
     Indication: CYSTITIS INTERSTITIAL
  19. ATIVAN [Concomitant]
     Indication: DEPRESSION
  20. DUCOLAX [Concomitant]
     Indication: CONSTIPATION
  21. BACTROBAN [Concomitant]
     Indication: BUNION
  22. BENADRYL [Concomitant]
     Indication: RHINITIS ALLERGIC
  23. CLARITIN [Concomitant]
     Indication: RHINITIS ALLERGIC
  24. PYRIDIUM [Concomitant]
     Indication: BLADDER SPASM
  25. OXYCONTIN [Concomitant]
     Indication: BACK PAIN
  26. ISTALOL [Concomitant]
  27. LUMIGAN [Concomitant]
  28. EPIPEN [Concomitant]
  29. ACIPHEX [Concomitant]
  30. COLACE [Concomitant]
  31. BACK INJECTIONS [Concomitant]
  32. SYNVISC [Concomitant]
  33. CORTISONE [Concomitant]

REACTIONS (44)
  - Fall [Recovered/Resolved]
  - Radius fracture [Unknown]
  - Rib fracture [Unknown]
  - Foot fracture [Unknown]
  - VIIth nerve paralysis [Recovered/Resolved]
  - Suicidal ideation [Unknown]
  - Rotator cuff syndrome [Unknown]
  - Weight decreased [Recovered/Resolved]
  - Decreased appetite [Recovered/Resolved]
  - Dyspnoea [Unknown]
  - Musculoskeletal chest pain [Unknown]
  - Cough [Unknown]
  - Conjunctivitis [Unknown]
  - Cystitis interstitial [Recovering/Resolving]
  - Back pain [Unknown]
  - Chest discomfort [Unknown]
  - Laceration [Recovered/Resolved]
  - Fatigue [Unknown]
  - Oedema [Recovering/Resolving]
  - Emotional disorder [Unknown]
  - Glaucoma [Unknown]
  - Pain in extremity [Unknown]
  - Bronchitis [Unknown]
  - Bunion [Unknown]
  - Palpitations [Unknown]
  - Anxiety [Unknown]
  - Sneezing [Recovered/Resolved]
  - Visual acuity reduced [Unknown]
  - Upper-airway cough syndrome [Unknown]
  - Otitis media [Unknown]
  - Chills [Unknown]
  - Polymyalgia rheumatica [Unknown]
  - Rhinitis allergic [Unknown]
  - Urinary tract infection [Unknown]
  - Bladder spasm [Unknown]
  - Asthenia [Unknown]
  - Depression [Unknown]
  - Abdominal pain [Unknown]
  - Diarrhoea [Unknown]
  - Arthralgia [Unknown]
  - Eructation [Recovered/Resolved]
  - Constipation [Unknown]
  - Drug hypersensitivity [Unknown]
  - Off label use [Unknown]
